FAERS Safety Report 9867183 (Version 2)
Quarter: 2014Q2

REPORT INFORMATION
  Report Type: Spontaneous
  Country: US (occurrence: US)
  Receive Date: 20140204
  Receipt Date: 20140509
  Transmission Date: 20141212
  Serious: Yes (Disabling, Other)
  Sender: FDA-Public Use
  Company Number: US-MYLANLABS-2014S1001888

PATIENT
  Age: 7 Year
  Sex: Male
  Weight: 30.84 kg

DRUGS (2)
  1. RISPERIDONE TABLETS USP [Suspect]
     Indication: ATTENTION DEFICIT/HYPERACTIVITY DISORDER
     Dosage: 0.25MG QAM, 0.5MG HS
     Route: 048
     Dates: start: 201108
  2. ADDERALL [Concomitant]

REACTIONS (5)
  - Tardive dyskinesia [Not Recovered/Not Resolved]
  - Tourette^s disorder [Not Recovered/Not Resolved]
  - Arthritis [Not Recovered/Not Resolved]
  - Abasia [Not Recovered/Not Resolved]
  - Lethargy [Not Recovered/Not Resolved]
